FAERS Safety Report 21944138 (Version 1)
Quarter: 2023Q1

REPORT INFORMATION
  Report Type: Spontaneous
  Country: FR (occurrence: FR)
  Receive Date: 20230202
  Receipt Date: 20230202
  Transmission Date: 20230418
  Serious: Yes (Other)
  Sender: FDA-Public Use
  Company Number: None

PATIENT
  Age: 51 Year
  Sex: Female

DRUGS (2)
  1. INFLIXIMAB [Suspect]
     Active Substance: INFLIXIMAB
     Indication: Spondyloarthropathy
     Dosage: (MAMMIFERE/HAMSTER/CELLULES CHO)
     Route: 042
     Dates: start: 20221214, end: 20221214
  2. METHOTREXATE [Suspect]
     Active Substance: METHOTREXATE
     Indication: Spondyloarthropathy
     Route: 058

REACTIONS (2)
  - Headache [Not Recovered/Not Resolved]
  - Product use in unapproved indication [Unknown]

NARRATIVE: CASE EVENT DATE: 20221214
